FAERS Safety Report 8799640 (Version 1)
Quarter: 2012Q4

REPORT INFORMATION
  Report Type: Spontaneous
  Country: US (occurrence: None)
  Receive Date: 20120918
  Receipt Date: 20120918
  Transmission Date: 20130627
  Serious: Yes (Death)
  Sender: FDA-Public Use
  Company Number: None

PATIENT
  Age: 83 Year
  Sex: Female

DRUGS (10)
  1. LETAIRIS [Suspect]
     Indication: PULMONARY HYPERTENSION SECONDARY
     Route: 048
  2. AMBRISENTAN [Concomitant]
  3. SILDENAFIL [Concomitant]
  4. FUROSEMIDE [Concomitant]
  5. LORAZEPAM [Concomitant]
  6. ALBUTEROL [Concomitant]
  7. CITALOPRAM [Concomitant]
  8. SIMVASTATIN [Concomitant]
  9. OMEPRAZOLE [Concomitant]
  10. IPRATROPIUM [Concomitant]

REACTIONS (1)
  - General physical health deterioration [None]
